FAERS Safety Report 24857260 (Version 2)
Quarter: 2025Q1

REPORT INFORMATION
  Report Type: Spontaneous
  Country: US (occurrence: US)
  Receive Date: 20250117
  Receipt Date: 20250131
  Transmission Date: 20250408
  Serious: No
  Sender: PFIZER
  Company Number: US-PFIZER INC-PV202300161206

PATIENT
  Age: 78 Year
  Sex: Female
  Weight: 95.71 kg

DRUGS (6)
  1. IBRANCE [Suspect]
     Active Substance: PALBOCICLIB
     Indication: Breast cancer female
  2. IBRANCE [Suspect]
     Active Substance: PALBOCICLIB
  3. IBRANCE [Suspect]
     Active Substance: PALBOCICLIB
  4. IBRANCE [Suspect]
     Active Substance: PALBOCICLIB
  5. IBRANCE [Suspect]
     Active Substance: PALBOCICLIB
  6. ANASTROZOLE [Concomitant]
     Active Substance: ANASTROZOLE
     Indication: Full blood count abnormal
     Dosage: 1 MG, 1X/DAY TAKE WITH IBRANCE
     Route: 048

REACTIONS (2)
  - White blood cell count abnormal [Unknown]
  - Off label use [Unknown]
